FAERS Safety Report 15434030 (Version 2)
Quarter: 2018Q4

REPORT INFORMATION
  Report Type: Spontaneous
  Country: US (occurrence: US)
  Receive Date: 20180927
  Receipt Date: 20181217
  Transmission Date: 20190204
  Serious: Yes (Other)
  Sender: FDA-Public Use
  Company Number: US-SA-2018SA266719

PATIENT
  Age: 64 Year
  Sex: Female
  Weight: 81 kg

DRUGS (15)
  1. TAXOTERE [Suspect]
     Active Substance: DOCETAXEL
     Dosage: 140 MG - 150 MG
     Route: 042
     Dates: start: 20160104, end: 20160104
  2. GLIPIZIDE. [Concomitant]
     Active Substance: GLIPIZIDE
     Dosage: UNK
     Dates: start: 20140201
  3. DECADRON [Concomitant]
     Active Substance: DEXAMETHASONE
  4. LOPRESSOR [Concomitant]
     Active Substance: METOPROLOL TARTRATE
     Dosage: UNK
     Dates: start: 20120101
  5. AMLODIPINE [Concomitant]
     Active Substance: AMLODIPINE BESYLATE
     Dosage: UNK
     Dates: start: 20140101
  6. PARAPLATIN [Concomitant]
     Active Substance: CARBOPLATIN
  7. BABY ASPIRIN [Concomitant]
     Active Substance: ASPIRIN
     Dosage: UNK
     Dates: start: 20150101
  8. HERCEPTIN [Concomitant]
     Active Substance: TRASTUZUMAB
  9. ALOXI [Concomitant]
     Active Substance: PALONOSETRON HYDROCHLORIDE
  10. TAXOTERE [Suspect]
     Active Substance: DOCETAXEL
     Indication: BREAST CANCER FEMALE
     Dosage: 140 MG - 150 MG
     Route: 042
     Dates: start: 20151030, end: 20151030
  11. EMEND [Concomitant]
     Active Substance: APREPITANT
  12. CARBOPLATIN. [Concomitant]
     Active Substance: CARBOPLATIN
  13. BENADRYL [Concomitant]
     Active Substance: DIPHENHYDRAMINE HYDROCHLORIDE
  14. NEULASTA [Concomitant]
     Active Substance: PEGFILGRASTIM
  15. PERJETA [Concomitant]
     Active Substance: PERTUZUMAB

REACTIONS (1)
  - Alopecia [Not Recovered/Not Resolved]

NARRATIVE: CASE EVENT DATE: 20160704
